FAERS Safety Report 8269763 (Version 5)
Quarter: 2018Q3

REPORT INFORMATION
  Report Type: Report from Study
  Country: ZA (occurrence: ZA)
  Receive Date: 20111130
  Receipt Date: 20180712
  Transmission Date: 20181010
  Serious: Yes (Hospitalization, Other)
  Sender: FDA-Public Use
  Company Number: PHHO2011ZA03780

PATIENT

DRUGS (15)
  1. VITAMIN B?COMPLEX [Concomitant]
     Active Substance: DEXPANTHENOL\NIACINAMIDE\PYRIDOXINE HYDROCHLORIDE\RIBOFLAVIN 5^-PHOSPHATE SODIUM\THIAMINE HYDROCHLORIDE
     Indication: SUPPLEMENTATION THERAPY
     Dosage: 1 UNK, QD
     Route: 048
     Dates: start: 20110211
  2. FLAMAZINE [Concomitant]
     Active Substance: SILVER SULFADIAZINE
     Indication: BREAST DISORDER
     Dosage: 1 UNK, QD
     Route: 061
     Dates: start: 20110218
  3. METHYL SALICYLATE [Concomitant]
     Active Substance: METHYL SALICYLATE
     Indication: PAIN IN EXTREMITY
     Dosage: 1 UNK, PRN
     Route: 061
     Dates: start: 20110121
  4. DAKTARIN ORAL GEL [Concomitant]
     Active Substance: MICONAZOLE
     Indication: MUCOSAL INFLAMMATION
     Dosage: 1 APPLICATION, TID
     Route: 048
     Dates: start: 20110225, end: 20110329
  5. GLYCOTHYMOLIN [Concomitant]
     Indication: PROPHYLAXIS
     Dosage: 5 ML, PRN
     Route: 048
     Dates: start: 20110128, end: 20110301
  6. MYCOSTATIN [Concomitant]
     Active Substance: NYSTATIN
     Indication: MUCOSAL INFLAMMATION
     Dosage: 1 ML, TID
     Route: 042
     Dates: start: 20110225, end: 20110301
  7. MAXOLON [Concomitant]
     Active Substance: METOCLOPRAMIDE HYDROCHLORIDE
     Indication: PROPHYLAXIS OF NAUSEA AND VOMITING
     Dosage: 10 MG, PRN
     Route: 048
     Dates: start: 20110128, end: 20110309
  8. CIPROBAY [Concomitant]
     Active Substance: CIPROFLOXACIN
     Indication: MICTURITION URGENCY
     Dosage: 500 MG, BID
     Route: 048
     Dates: start: 20110121, end: 20110127
  9. IMODIUM [Concomitant]
     Active Substance: LOPERAMIDE HYDROCHLORIDE
     Indication: DIARRHOEA
     Dosage: 4 MG, PRN
     Route: 048
     Dates: start: 20110128, end: 20110309
  10. COMPARATOR TRASTUZUMAB [Suspect]
     Active Substance: TRASTUZUMAB
     Indication: BREAST CANCER METASTATIC
     Dosage: 127.5 MG, UNK
     Route: 042
     Dates: start: 20110128
  11. MICROGENICS [Concomitant]
     Indication: PAIN
     Dosage: 1 U, TID
     Route: 048
     Dates: start: 20110225, end: 20110301
  12. DECADRAN [Concomitant]
     Active Substance: DEXAMETHASONE
     Indication: PROPHYLAXIS OF NAUSEA AND VOMITING
     Dosage: 10 MG, WEEKLY
     Route: 042
     Dates: start: 20110206, end: 20110211
  13. VOLTAREN [Concomitant]
     Active Substance: DICLOFENAC SODIUM
     Indication: PAIN
     Dosage: 75 MG, QD
     Route: 030
     Dates: start: 20110225, end: 20110225
  14. AFINITOR [Suspect]
     Active Substance: EVEROLIMUS
     Indication: BREAST CANCER METASTATIC
     Dosage: UNK
     Route: 048
     Dates: start: 20110128, end: 20110225
  15. COMPARATOR PACLITAXEL [Suspect]
     Active Substance: PACLITAXEL
     Indication: BREAST CANCER METASTATIC
     Dosage: 135.2 MG, UNK
     Route: 042
     Dates: start: 20110128

REACTIONS (7)
  - Gastritis [Recovered/Resolved]
  - Asthenia [Recovered/Resolved]
  - Nausea [Recovered/Resolved]
  - Vomiting [Recovered/Resolved]
  - Aspartate aminotransferase increased [Recovered/Resolved]
  - Diarrhoea [Recovered/Resolved]
  - Alanine aminotransferase increased [Recovered/Resolved]

NARRATIVE: CASE EVENT DATE: 20110221
